FAERS Safety Report 16319510 (Version 9)
Quarter: 2025Q2

REPORT INFORMATION
  Report Type: Report from Study
  Country: TR (occurrence: TR)
  Receive Date: 20190516
  Receipt Date: 20250403
  Transmission Date: 20250716
  Serious: Yes (Other)
  Sender: CHIESI
  Company Number: TR-AEGERION PHARMACEUTICAL, INC-AEGR004260

PATIENT
  Sex: Male

DRUGS (2)
  1. METRELEPTIN [Suspect]
     Active Substance: METRELEPTIN
     Indication: Congenital leptin deficiency
     Route: 058
     Dates: start: 20171107
  2. METRELEPTIN [Suspect]
     Active Substance: METRELEPTIN
     Dates: end: 20181010

REACTIONS (7)
  - Drug resistance [Unknown]
  - Weight increased [Not Recovered/Not Resolved]
  - Neutralising antibodies positive [Unknown]
  - Drug specific antibody present [Unknown]
  - Drug ineffective for unapproved indication [Unknown]
  - Off label use [Unknown]
  - Product availability issue [Unknown]
